FAERS Safety Report 6073723-9 (Version None)
Quarter: 2009Q1

REPORT INFORMATION
  Report Type: 
  Country: None (occurrence: None)
  Receive Date: 20090211
  Receipt Date: 20090203
  Transmission Date: 20090719
  Serious: Yes (Other)
  Sender: FDA-Public Use
  Company Number: US-JNJFOC-20090201323

PATIENT
  Sex: Female

DRUGS (7)
  1. FENTANYL TRANSDERMAL SYSTEM [Suspect]
     Indication: BACK PAIN
     Route: 062
  2. DURAGESIC-100 [Suspect]
     Route: 062
  3. DURAGESIC-100 [Suspect]
     Indication: BACK PAIN
     Route: 062
  4. QUINAPRIL [Concomitant]
     Indication: BLOOD PRESSURE
     Route: 048
  5. LOZOL [Concomitant]
     Indication: DIURETIC THERAPY
     Route: 048
  6. LOZOL [Concomitant]
     Indication: BLOOD PRESSURE
     Route: 048
  7. XANAX XR [Concomitant]
     Indication: FEELING OF RELAXATION
     Route: 048

REACTIONS (16)
  - ABDOMINAL PAIN UPPER [None]
  - ARTHRALGIA [None]
  - BACK PAIN [None]
  - DIARRHOEA [None]
  - FALL [None]
  - FRACTURED ISCHIUM [None]
  - GASTROENTERITIS SALMONELLA [None]
  - HEADACHE [None]
  - JOINT RANGE OF MOTION DECREASED [None]
  - MUSCULOSKELETAL PAIN [None]
  - NECK PAIN [None]
  - PAIN IN EXTREMITY [None]
  - PELVIC PAIN [None]
  - PYREXIA [None]
  - RETCHING [None]
  - WEIGHT FLUCTUATION [None]
